FAERS Safety Report 13430219 (Version 1)
Quarter: 2017Q2

REPORT INFORMATION
  Report Type: Spontaneous
  Country: US (occurrence: US)
  Receive Date: 20170411
  Receipt Date: 20170411
  Transmission Date: 20170830
  Serious: No
  Sender: FDA-Public Use
  Company Number: None

PATIENT
  Age: 76 Year
  Sex: Male

DRUGS (2)
  1. SUTENT [Suspect]
     Active Substance: SUNITINIB MALATE
     Indication: METASTASES TO BONE
     Dosage: 25MG DAILY FOR 4 WEEKS THEN OFF FOR 2 WEEKS BY MOUTH
     Route: 048
     Dates: start: 20161125, end: 20170406
  2. SUTENT [Suspect]
     Active Substance: SUNITINIB MALATE
     Indication: RENAL CANCER
     Dosage: 25MG DAILY FOR 4 WEEKS THEN OFF FOR 2 WEEKS BY MOUTH
     Route: 048
     Dates: start: 20161125, end: 20170406

REACTIONS (1)
  - Disease progression [None]

NARRATIVE: CASE EVENT DATE: 20170406
